FAERS Safety Report 11044539 (Version 1)
Quarter: 2015Q2

REPORT INFORMATION
  Report Type: Spontaneous
  Country: IT (occurrence: IT)
  Receive Date: 20150417
  Receipt Date: 20150417
  Transmission Date: 20150821
  Serious: Yes (Other)
  Sender: FDA-Public Use
  Company Number: IT-GILEAD-2015-0148078

PATIENT
  Age: 51 Year
  Sex: Male

DRUGS (7)
  1. COPEGUS [Suspect]
     Active Substance: RIBAVIRIN
     Indication: CHRONIC HEPATITIS C
     Dosage: 1200 MG, UNK
     Route: 048
     Dates: start: 20150311, end: 20150323
  2. RAMIPRIL. [Concomitant]
     Active Substance: RAMIPRIL
     Dosage: 0.5 UNK, UNK
     Route: 048
     Dates: start: 20141113, end: 20150401
  3. KIVEXA [Concomitant]
     Active Substance: ABACAVIR SULFATE\LAMIVUDINE
     Dosage: 1 DF, UNK
     Route: 048
     Dates: start: 20090925, end: 20150401
  4. NORVIR [Concomitant]
     Active Substance: RITONAVIR
     Dosage: 1 DF, UNK
     Route: 048
     Dates: start: 20140403, end: 20150401
  5. PREZISTA [Concomitant]
     Active Substance: DARUNAVIR ETHANOLATE
     Dosage: 1 DF, UNK
     Route: 048
     Dates: start: 20140403, end: 20150401
  6. SOVALDI [Suspect]
     Active Substance: SOFOSBUVIR
     Indication: CHRONIC HEPATITIS C
     Dosage: 400 MG, UNK
     Route: 048
     Dates: start: 20150311, end: 20150323
  7. ADALAT [Concomitant]
     Active Substance: NIFEDIPINE
     Dosage: 1 DF, UNK
     Route: 048
     Dates: start: 20091001, end: 20150401

REACTIONS (5)
  - Insomnia [Recovered/Resolved]
  - Decreased appetite [Recovered/Resolved]
  - Depression [Recovered/Resolved]
  - Depressed level of consciousness [Recovered/Resolved]
  - Skin burning sensation [Recovered/Resolved]

NARRATIVE: CASE EVENT DATE: 20150320
